FAERS Safety Report 5164392-0 (Version None)
Quarter: 2006Q4

REPORT INFORMATION
  Report Type: 
  Country: None (occurrence: None)
  Receive Date: 20061129
  Receipt Date: 20061129
  Transmission Date: 20070319
  Serious: Yes (Hospitalization)
  Sender: FDA-Public Use
  Company Number: None

PATIENT
  Age: 84 Year
  Sex: Female

DRUGS (5)
  1. CARBAMAZEPINE [Suspect]
     Indication: CORONARY ARTERY DISEASE
     Dosage: 200MG BID PO
     Route: 048
     Dates: start: 20060707, end: 20060723
  2. CARBAMAZEPINE [Suspect]
     Indication: TRIGEMINAL NEURALGIA
     Dosage: 200MG BID PO
     Route: 048
     Dates: start: 20060707, end: 20060723
  3. ASPIRIN [Suspect]
     Indication: PROPHYLAXIS
     Dosage: 81MG DAILY PO
     Route: 048
  4. LIPITOR [Concomitant]
  5. AMLODIPINE [Concomitant]

REACTIONS (5)
  - ASTHENIA [None]
  - EPISTAXIS [None]
  - HAEMATOCHEZIA [None]
  - HAEMOPTYSIS [None]
  - THROMBOCYTOPENIA [None]
